FAERS Safety Report 6210064 (Version 17)
Quarter: 2013Q3

REPORT INFORMATION
  Report Type: Spontaneous
  Country: US (occurrence: US)
  Receive Date: 20070108
  Receipt Date: 20130805
  Transmission Date: 20140515
  Serious: Yes (Death, Hospitalization, Other)
  Sender: FDA-Public Use
  Company Number: PHEH2007US00518

PATIENT
  Age: 74 Year
  Sex: Male

DRUGS (24)
  1. AREDIA [Suspect]
  2. ZOMETA [Suspect]
  3. EULEXIN [Concomitant]
  4. LISINOPRIL [Concomitant]
  5. LUPRON [Concomitant]
  6. ZYRTEC [Concomitant]
  7. NAVELBINE [Concomitant]
  8. RADIATION THERAPY [Concomitant]
  9. CHEMOTHERAPEUTICS NOS [Concomitant]
  10. METOPROLOL [Concomitant]
  11. DIGOXIN [Concomitant]
  12. ASPIRIN ^BAYER^ [Concomitant]
  13. PROTONIX ^PHARMACIA^ [Concomitant]
  14. PROCHLORPERAZINE [Concomitant]
  15. OXYCODONE [Concomitant]
  16. OXYCODONE HYDROCHLORIDE W/PARACETAMOL [Concomitant]
  17. IBUPROFEN [Concomitant]
  18. LOPRESSOR [Concomitant]
  19. LANOXIN [Concomitant]
  20. EMCYT [Concomitant]
  21. MULTIVITAMINS [Concomitant]
  22. PROCRIT                            /00909301/ [Concomitant]
  23. ALOXI [Concomitant]
  24. ZESTRIL [Concomitant]

REACTIONS (91)
  - Septic shock [Fatal]
  - Abdominal infection [Fatal]
  - Colitis [Fatal]
  - Intestinal obstruction [Fatal]
  - Acute respiratory failure [Fatal]
  - Prostate cancer metastatic [Fatal]
  - Rectal haemorrhage [Unknown]
  - Osteonecrosis of jaw [Unknown]
  - General physical health deterioration [Unknown]
  - Pain [Unknown]
  - Anxiety [Unknown]
  - Decreased interest [Unknown]
  - Periodontal disease [Unknown]
  - Dental caries [Unknown]
  - Bone disorder [Unknown]
  - Thoracic vertebral fracture [Unknown]
  - X-ray [Unknown]
  - Myocardial ischaemia [Unknown]
  - Osteopenia [Unknown]
  - Spinal osteoarthritis [Unknown]
  - Cervical spinal stenosis [Unknown]
  - Bone pain [Unknown]
  - Cyst [Unknown]
  - Glossodynia [Unknown]
  - Weight decreased [Unknown]
  - Nausea [Unknown]
  - Decreased appetite [Unknown]
  - Diverticulum [Unknown]
  - Proctitis [Unknown]
  - Erosive oesophagitis [Unknown]
  - Central obesity [Unknown]
  - Abdominal hernia [Unknown]
  - Eructation [Unknown]
  - Constipation [Unknown]
  - Abdominal pain upper [Unknown]
  - Clostridium difficile colitis [Unknown]
  - Irritable bowel syndrome [Fatal]
  - Chest pain [Unknown]
  - Supraventricular tachycardia [Unknown]
  - Hypomagnesaemia [Unknown]
  - Hypophosphataemia [Unknown]
  - Pneumonia [Unknown]
  - Abdominal pain [Fatal]
  - Renal failure acute [Unknown]
  - Obstruction gastric [Fatal]
  - Hyperkalaemia [Unknown]
  - Blood pressure increased [Unknown]
  - Pulmonary fibrosis [Unknown]
  - Bronchiectasis [Unknown]
  - Renal cyst [Unknown]
  - Pancreatitis [Unknown]
  - Vomiting [Unknown]
  - Diarrhoea [Unknown]
  - Lymphadenopathy [Unknown]
  - Dental fistula [Unknown]
  - Blood glucose increased [Unknown]
  - Alanine aminotransferase decreased [Unknown]
  - Metabolic acidosis [Unknown]
  - Metastases to lung [Unknown]
  - Hypocalcaemia [Unknown]
  - Hypotension [Unknown]
  - Drug intolerance [Unknown]
  - Limb injury [Unknown]
  - Bronchitis [Recovered/Resolved]
  - Cough [Unknown]
  - Dehydration [Unknown]
  - Sinusitis [Unknown]
  - Pruritus [Unknown]
  - Telangiectasia [Unknown]
  - Haemorrhoids [Unknown]
  - Deep vein thrombosis [Unknown]
  - Pleural effusion [Unknown]
  - Kyphosis [Unknown]
  - Cataract [Unknown]
  - Infected dermal cyst [Unknown]
  - Neck mass [Unknown]
  - Hypertensive angiopathy [Unknown]
  - Back pain [Unknown]
  - Hypoxia [Unknown]
  - Pulmonary embolism [Unknown]
  - Atelectasis [Unknown]
  - Pancreatic atrophy [Unknown]
  - Nephrolithiasis [Unknown]
  - Renal atrophy [Unknown]
  - Upper respiratory tract infection [Unknown]
  - Viral infection [Unknown]
  - Dysphagia [Unknown]
  - Haematochezia [Unknown]
  - Large intestine polyp [Unknown]
  - Colon adenoma [Unknown]
  - Metastases to spine [Unknown]
